FAERS Safety Report 25418175 (Version 1)
Quarter: 2025Q2

REPORT INFORMATION
  Report Type: Spontaneous
  Country: CA (occurrence: CA)
  Receive Date: 20250610
  Receipt Date: 20250610
  Transmission Date: 20250716
  Serious: Yes (Other)
  Sender: MYLAN
  Company Number: CA-MYLANLABS-2025M1048493

PATIENT
  Age: 32 Year
  Sex: Female

DRUGS (68)
  1. SERTRALINE [Suspect]
     Active Substance: SERTRALINE HYDROCHLORIDE
     Indication: Drug withdrawal syndrome
     Dosage: 25 MILLIGRAM, QD (1 EVERY 1 DAYS)
  2. SERTRALINE [Suspect]
     Active Substance: SERTRALINE HYDROCHLORIDE
     Dosage: 25 MILLIGRAM, QD (1 EVERY 1 DAYS)
     Route: 065
  3. SERTRALINE [Suspect]
     Active Substance: SERTRALINE HYDROCHLORIDE
     Dosage: 25 MILLIGRAM, QD (1 EVERY 1 DAYS)
     Route: 065
  4. SERTRALINE [Suspect]
     Active Substance: SERTRALINE HYDROCHLORIDE
     Dosage: 25 MILLIGRAM, QD (1 EVERY 1 DAYS)
  5. BACLOFEN [Suspect]
     Active Substance: BACLOFEN
     Indication: Drug withdrawal syndrome
     Dosage: 10 MILLIGRAM, QD (1 EVERY 1 DAYS)
     Route: 065
  6. BACLOFEN [Suspect]
     Active Substance: BACLOFEN
     Dosage: 10 MILLIGRAM, QD (1 EVERY 1 DAYS)
  7. BACLOFEN [Suspect]
     Active Substance: BACLOFEN
     Dosage: 10 MILLIGRAM, QD (1 EVERY 1 DAYS)
  8. BACLOFEN [Suspect]
     Active Substance: BACLOFEN
     Dosage: 10 MILLIGRAM, QD (1 EVERY 1 DAYS)
     Route: 065
  9. BACLOFEN [Suspect]
     Active Substance: BACLOFEN
     Dosage: 10 MILLIGRAM, QID (4 EVERY 1 DAYS)
     Route: 065
  10. BACLOFEN [Suspect]
     Active Substance: BACLOFEN
     Dosage: 10 MILLIGRAM, QID (4 EVERY 1 DAYS)
  11. BACLOFEN [Suspect]
     Active Substance: BACLOFEN
     Dosage: 10 MILLIGRAM, QID (4 EVERY 1 DAYS)
  12. BACLOFEN [Suspect]
     Active Substance: BACLOFEN
     Dosage: 10 MILLIGRAM, QID (4 EVERY 1 DAYS)
     Route: 065
  13. BACLOFEN [Suspect]
     Active Substance: BACLOFEN
     Dosage: 10 MILLIGRAM, BID (2 EVERY 1 DAYS)
  14. BACLOFEN [Suspect]
     Active Substance: BACLOFEN
     Dosage: 10 MILLIGRAM, BID (2 EVERY 1 DAYS)
  15. BACLOFEN [Suspect]
     Active Substance: BACLOFEN
     Dosage: 10 MILLIGRAM, BID (2 EVERY 1 DAYS)
     Route: 065
  16. BACLOFEN [Suspect]
     Active Substance: BACLOFEN
     Dosage: 10 MILLIGRAM, BID (2 EVERY 1 DAYS)
     Route: 065
  17. BACLOFEN [Suspect]
     Active Substance: BACLOFEN
     Dosage: 10 MILLIGRAM, TID (3 EVERY 1 DAYS)
  18. BACLOFEN [Suspect]
     Active Substance: BACLOFEN
     Dosage: 10 MILLIGRAM, TID (3 EVERY 1 DAYS)
  19. BACLOFEN [Suspect]
     Active Substance: BACLOFEN
     Dosage: 10 MILLIGRAM, TID (3 EVERY 1 DAYS)
     Route: 065
  20. BACLOFEN [Suspect]
     Active Substance: BACLOFEN
     Dosage: 10 MILLIGRAM, TID (3 EVERY 1 DAYS)
     Route: 065
  21. DIAZEPAM [Suspect]
     Active Substance: DIAZEPAM
     Indication: Drug withdrawal syndrome
     Dosage: 10 MILLIGRAM, Q6H (1 EVERY 6 HOURS)
     Route: 065
  22. DIAZEPAM [Suspect]
     Active Substance: DIAZEPAM
     Dosage: 10 MILLIGRAM, Q6H (1 EVERY 6 HOURS)
  23. DIAZEPAM [Suspect]
     Active Substance: DIAZEPAM
     Dosage: 10 MILLIGRAM, Q6H (1 EVERY 6 HOURS)
  24. DIAZEPAM [Suspect]
     Active Substance: DIAZEPAM
     Dosage: 10 MILLIGRAM, Q6H (1 EVERY 6 HOURS)
     Route: 065
  25. DIAZEPAM [Suspect]
     Active Substance: DIAZEPAM
     Dosage: 20 MILLIGRAM, Q6H (1 EVERY 6 HOURS)
     Route: 065
  26. DIAZEPAM [Suspect]
     Active Substance: DIAZEPAM
     Dosage: 20 MILLIGRAM, Q6H (1 EVERY 6 HOURS)
  27. DIAZEPAM [Suspect]
     Active Substance: DIAZEPAM
     Dosage: 20 MILLIGRAM, Q6H (1 EVERY 6 HOURS)
  28. DIAZEPAM [Suspect]
     Active Substance: DIAZEPAM
     Dosage: 20 MILLIGRAM, Q6H (1 EVERY 6 HOURS)
     Route: 065
  29. DIAZEPAM [Suspect]
     Active Substance: DIAZEPAM
     Dosage: 6 MILLIGRAM, Q6H (1 EVERY 6 HOURS)
  30. DIAZEPAM [Suspect]
     Active Substance: DIAZEPAM
     Dosage: 6 MILLIGRAM, Q6H (1 EVERY 6 HOURS)
  31. DIAZEPAM [Suspect]
     Active Substance: DIAZEPAM
     Dosage: 6 MILLIGRAM, Q6H (1 EVERY 6 HOURS)
     Route: 065
  32. DIAZEPAM [Suspect]
     Active Substance: DIAZEPAM
     Dosage: 6 MILLIGRAM, Q6H (1 EVERY 6 HOURS)
     Route: 065
  33. DIAZEPAM [Suspect]
     Active Substance: DIAZEPAM
     Dosage: 8 MILLIGRAM, Q6H (1 EVERY 6 HOURS)
  34. DIAZEPAM [Suspect]
     Active Substance: DIAZEPAM
     Dosage: 8 MILLIGRAM, Q6H (1 EVERY 6 HOURS)
  35. DIAZEPAM [Suspect]
     Active Substance: DIAZEPAM
     Dosage: 8 MILLIGRAM, Q6H (1 EVERY 6 HOURS)
     Route: 065
  36. DIAZEPAM [Suspect]
     Active Substance: DIAZEPAM
     Dosage: 8 MILLIGRAM, Q6H (1 EVERY 6 HOURS)
     Route: 065
  37. DIAZEPAM [Suspect]
     Active Substance: DIAZEPAM
     Dosage: 4 MILLIGRAM, Q6H (1 EVERY 6 HOURS)
  38. DIAZEPAM [Suspect]
     Active Substance: DIAZEPAM
     Dosage: 4 MILLIGRAM, Q6H (1 EVERY 6 HOURS)
  39. DIAZEPAM [Suspect]
     Active Substance: DIAZEPAM
     Dosage: 4 MILLIGRAM, Q6H (1 EVERY 6 HOURS)
     Route: 065
  40. DIAZEPAM [Suspect]
     Active Substance: DIAZEPAM
     Dosage: 4 MILLIGRAM, Q6H (1 EVERY 6 HOURS)
     Route: 065
  41. DIAZEPAM [Suspect]
     Active Substance: DIAZEPAM
     Dosage: 20 MILLIGRAM, BID (2 EVERY 1 DAYS)
     Route: 065
  42. DIAZEPAM [Suspect]
     Active Substance: DIAZEPAM
     Dosage: 20 MILLIGRAM, BID (2 EVERY 1 DAYS)
  43. DIAZEPAM [Suspect]
     Active Substance: DIAZEPAM
     Dosage: 20 MILLIGRAM, BID (2 EVERY 1 DAYS)
  44. DIAZEPAM [Suspect]
     Active Substance: DIAZEPAM
     Dosage: 20 MILLIGRAM, BID (2 EVERY 1 DAYS)
     Route: 065
  45. DIAZEPAM [Suspect]
     Active Substance: DIAZEPAM
     Route: 065
  46. DIAZEPAM [Suspect]
     Active Substance: DIAZEPAM
  47. DIAZEPAM [Suspect]
     Active Substance: DIAZEPAM
  48. DIAZEPAM [Suspect]
     Active Substance: DIAZEPAM
     Route: 065
  49. DIAZEPAM [Suspect]
     Active Substance: DIAZEPAM
     Dosage: 8 MILLIGRAM, Q4H (1 EVERY 4 HOURS)
  50. DIAZEPAM [Suspect]
     Active Substance: DIAZEPAM
     Dosage: 8 MILLIGRAM, Q4H (1 EVERY 4 HOURS)
  51. DIAZEPAM [Suspect]
     Active Substance: DIAZEPAM
     Dosage: 8 MILLIGRAM, Q4H (1 EVERY 4 HOURS)
     Route: 065
  52. DIAZEPAM [Suspect]
     Active Substance: DIAZEPAM
     Dosage: 8 MILLIGRAM, Q4H (1 EVERY 4 HOURS)
     Route: 065
  53. DIAZEPAM [Suspect]
     Active Substance: DIAZEPAM
  54. DIAZEPAM [Suspect]
     Active Substance: DIAZEPAM
     Route: 065
  55. DIAZEPAM [Suspect]
     Active Substance: DIAZEPAM
  56. DIAZEPAM [Suspect]
     Active Substance: DIAZEPAM
     Route: 065
  57. OXYBATE [Suspect]
     Active Substance: OXYBATE
     Indication: Anxiolytic therapy
  58. OXYBATE [Suspect]
     Active Substance: OXYBATE
     Route: 065
  59. OXYBATE [Suspect]
     Active Substance: OXYBATE
     Route: 065
  60. OXYBATE [Suspect]
     Active Substance: OXYBATE
  61. METHAMPHETAMINE [Suspect]
     Active Substance: METHAMPHETAMINE
     Indication: Anxiolytic therapy
  62. METHAMPHETAMINE [Suspect]
     Active Substance: METHAMPHETAMINE
     Route: 065
  63. METHAMPHETAMINE [Suspect]
     Active Substance: METHAMPHETAMINE
     Route: 065
  64. METHAMPHETAMINE [Suspect]
     Active Substance: METHAMPHETAMINE
  65. NICOTINE [Suspect]
     Active Substance: NICOTINE
     Indication: Drug withdrawal syndrome
  66. NICOTINE [Suspect]
     Active Substance: NICOTINE
     Route: 062
  67. NICOTINE [Suspect]
     Active Substance: NICOTINE
     Route: 062
  68. NICOTINE [Suspect]
     Active Substance: NICOTINE

REACTIONS (3)
  - Premature delivery [Recovered/Resolved]
  - Maternal exposure during pregnancy [Recovered/Resolved]
  - Product use in unapproved indication [Unknown]
